FAERS Safety Report 21641178 (Version 1)
Quarter: 2022Q4

REPORT INFORMATION
  Report Type: Spontaneous
  Country: US (occurrence: US)
  Receive Date: 20221125
  Receipt Date: 20221125
  Transmission Date: 20230113
  Serious: No
  Sender: FDA-Public Use
  Company Number: US-ABBVIE-4159910

PATIENT
  Sex: Female

DRUGS (1)
  1. HUMIRA [Suspect]
     Active Substance: ADALIMUMAB
     Indication: Product used for unknown indication
     Dosage: FORM STRENGTH UNITS: 40 MILLIGRAM
     Route: 058

REACTIONS (3)
  - Pain [Not Recovered/Not Resolved]
  - Joint effusion [Unknown]
  - Device difficult to use [Not Recovered/Not Resolved]
